FAERS Safety Report 8786168 (Version 1)
Quarter: 2012Q4

REPORT INFORMATION
  Report Type: 
  Country: US (occurrence: US)
  Receive Date: 20120914
  Receipt Date: 20120914
  Transmission Date: 20130627
  Serious: No
  Sender: FDA-Public Use
  Company Number: US-VERTEX PHARMACEUTICAL INC.-AE-2012-011544

PATIENT
  Age: 47 Year
  Sex: Female
  Weight: 63.64 kg

DRUGS (6)
  1. INCIVEK [Suspect]
     Indication: HEPATITIS C
     Route: 048
     Dates: start: 20120518, end: 20120725
  2. INCIVEK [Suspect]
     Route: 048
     Dates: start: 20120801
  3. PEGASYS [Concomitant]
     Indication: HEPATITIS C
     Route: 058
     Dates: start: 20120518, end: 20120725
  4. PEGASYS [Concomitant]
     Dates: start: 20120801
  5. RIBAVIRIN [Concomitant]
     Indication: HEPATITIS C
     Dates: start: 20120518, end: 20120725
  6. RIBAVIRIN [Concomitant]
     Dates: start: 20120801

REACTIONS (1)
  - White blood cell count decreased [Unknown]
